FAERS Safety Report 23146773 (Version 1)
Quarter: 2023Q4

REPORT INFORMATION
  Report Type: Spontaneous
  Country: CA (occurrence: CA)
  Receive Date: 20231105
  Receipt Date: 20231105
  Transmission Date: 20240109
  Serious: Yes (Other)
  Sender: FDA-Public Use
  Company Number: CA-VIIV HEALTHCARE LIMITED-CA2023114831

PATIENT
  Age: 38 Year
  Sex: Male

DRUGS (2)
  1. RILPIVIRINE [Suspect]
     Active Substance: RILPIVIRINE
     Indication: HIV infection
     Dosage: UNK UNK, Q2M (600MG/3ML CABOTEGRAVIR, 900MG/3ML RILPIVIRINE)?EXP DT=31-MAY-2025
     Route: 030
     Dates: start: 20230725
  2. CABOTEGRAVIR [Suspect]
     Active Substance: CABOTEGRAVIR
     Indication: HIV infection
     Dosage: UNK UNK, Q2M (600MG/3ML CABOTEGRAVIR, 900MG/3ML RILPIVIRINE)?EXP DT=31-MAY-2025
     Route: 030
     Dates: start: 20230725

REACTIONS (12)
  - Syncope [Unknown]
  - Haemorrhage [Unknown]
  - Loss of consciousness [Unknown]
  - Decorticate posture [Unknown]
  - Pain [Unknown]
  - Confusional state [Unknown]
  - Skin laceration [Unknown]
  - Suture insertion [Unknown]
  - Snoring [Unknown]
  - Fall [Unknown]
  - Vomiting [Unknown]
  - Fatigue [Unknown]

NARRATIVE: CASE EVENT DATE: 20231026
